FAERS Safety Report 24748621 (Version 1)
Quarter: 2024Q4

REPORT INFORMATION
  Report Type: Other
  Country: FR (occurrence: FR)
  Receive Date: 20241218
  Receipt Date: 20241218
  Transmission Date: 20250115
  Serious: Yes (Life-Threatening, Hospitalization)
  Sender: AIRGAS
  Company Number: IE-MLMSERVICE-20241129-PI262751-00253-2

PATIENT

DRUGS (3)
  1. OXYGEN [Suspect]
     Active Substance: OXYGEN
     Indication: Hypoxia
  2. ALBUTEROL [Concomitant]
     Active Substance: ALBUTEROL
  3. FUROSEMIDE [Concomitant]
     Active Substance: FUROSEMIDE

REACTIONS (1)
  - Respiratory failure [Recovered/Resolved]
